FAERS Safety Report 14678705 (Version 1)
Quarter: 2018Q1

REPORT INFORMATION
  Report Type: Spontaneous
  Country: US (occurrence: US)
  Receive Date: 20180326
  Receipt Date: 20180326
  Transmission Date: 20180509
  Serious: Yes (Hospitalization)
  Sender: FDA-Public Use
  Company Number: US-UNITED THERAPEUTICS-UNT-2018-001484

PATIENT
  Sex: Female

DRUGS (2)
  1. REMODULIN [Suspect]
     Active Substance: TREPROSTINIL
     Indication: PULMONARY ARTERIAL HYPERTENSION
     Dosage: 0.0733 ?G/KG, CONTINUING
     Route: 058
     Dates: start: 20170418
  2. REMODULIN [Suspect]
     Active Substance: TREPROSTINIL
     Dosage: 0.0333 ?G/KG, CONTINUING
     Route: 058
     Dates: start: 20170419

REACTIONS (10)
  - Fatigue [Unknown]
  - Weight fluctuation [Unknown]
  - Hypotension [Unknown]
  - Syncope [Unknown]
  - Oedema peripheral [Unknown]
  - Vomiting [Unknown]
  - Dyspnoea [Unknown]
  - Dizziness [Unknown]
  - Headache [Unknown]
  - Chest pain [Unknown]
